FAERS Safety Report 8281038 (Version 5)
Quarter: 2013Q2

REPORT INFORMATION
  Report Type: Report from Study
  Country: AR (occurrence: AR)
  Receive Date: 20111208
  Receipt Date: 20130524
  Transmission Date: 20140414
  Serious: Yes (Hospitalization, Other)
  Sender: FDA-Public Use
  Company Number: AR-ROCHE-1019727

PATIENT
  Sex: Male

DRUGS (2)
  1. RANIBIZUMAB [Suspect]
     Indication: MACULOPATHY
     Route: 050
  2. RANIBIZUMAB [Suspect]
     Dosage: THIRD DOSE
     Route: 050
     Dates: start: 201111

REACTIONS (4)
  - Pulmonary thrombosis [Recovered/Resolved]
  - Visual acuity reduced [Recovering/Resolving]
  - Drug ineffective [Unknown]
  - Optic ischaemic neuropathy [Not Recovered/Not Resolved]
